FAERS Safety Report 7397699-7 (Version None)
Quarter: 2011Q2

REPORT INFORMATION
  Report Type: 
  Country: None (occurrence: None)
  Receive Date: 20110406
  Receipt Date: 20110329
  Transmission Date: 20111010
  Serious: Yes (Hospitalization)
  Sender: FDA-Public Use
  Company Number: US-PFIZER INC-2011023401

PATIENT
  Sex: Female
  Weight: 79.365 kg

DRUGS (3)
  1. PREMARIN [Suspect]
     Route: 067
  2. PREMARIN [Suspect]
     Indication: VULVOVAGINAL DRYNESS
     Dosage: 1 G, 2X/WEEK
     Route: 061
     Dates: start: 20090123, end: 20100101
  3. INSULIN [Concomitant]
     Indication: DIABETES MELLITUS
     Dosage: 32R, 32M DAILY

REACTIONS (5)
  - GASTROOESOPHAGEAL REFLUX DISEASE [None]
  - DRUG INEFFECTIVE [None]
  - DRY SKIN [None]
  - EXPIRED DRUG ADMINISTERED [None]
  - DYSPEPSIA [None]
